FAERS Safety Report 7318051-6 (Version None)
Quarter: 2011Q1

REPORT INFORMATION
  Report Type: 
  Country: None (occurrence: None)
  Receive Date: 20110228
  Receipt Date: 20110216
  Transmission Date: 20110831
  Serious: Yes (Hospitalization)
  Sender: FDA-Public Use
  Company Number: US-BIOGENIDEC-2010BI038520

PATIENT
  Age: 1 Month
  Sex: Male
  Weight: 2 kg

DRUGS (3)
  1. HEPATITIS B VACCINE [Concomitant]
     Dates: start: 20100925, end: 20100925
  2. TYSABRI [Suspect]
     Indication: DRUG EXPOSURE DURING PREGNANCY
     Route: 064
     Dates: start: 20090127, end: 20100125
  3. POLY-VI-SOL [Concomitant]

REACTIONS (1)
  - CYANOSIS [None]
